FAERS Safety Report 4724718-6 (Version None)
Quarter: 2005Q3

REPORT INFORMATION
  Report Type: 
  Country: None (occurrence: None)
  Receive Date: 20050720
  Receipt Date: 20050720
  Transmission Date: 20060218
  Serious: Yes (Hospitalization)
  Sender: FDA-Public Use
  Company Number: None

PATIENT
  Age: 39 Year
  Sex: Female
  Weight: 92.0802 kg

DRUGS (1)
  1. ZELNORM [Suspect]
     Indication: COLITIS ISCHAEMIC
     Dosage: 6 MGM QD

REACTIONS (1)
  - LOWER GASTROINTESTINAL HAEMORRHAGE [None]
